FAERS Safety Report 8900703 (Version 1)
Quarter: 2012Q4

REPORT INFORMATION
  Report Type: 
  Country: CA (occurrence: CA)
  Receive Date: 20121109
  Receipt Date: 20121109
  Transmission Date: 20130627
  Serious: Yes (Death, Other)
  Sender: FDA-Public Use
  Company Number: PHMT2006CA01625

PATIENT
  Sex: Male

DRUGS (10)
  1. SANDOSTATIN LAR [Suspect]
     Dosage: 20 mg, QMO
     Dates: start: 20040217
  2. APO-FUROSEMIDE [Concomitant]
  3. ARTHROTEC [Concomitant]
  4. COLACE [Concomitant]
  5. DILAUDID [Concomitant]
  6. NORVASC [Concomitant]
  7. NOVOQUININE [Concomitant]
  8. POTASSIUM [Concomitant]
  9. TRIATEC [Concomitant]
  10. VITAMIN B1 [Concomitant]

REACTIONS (6)
  - Terminal state [Fatal]
  - Hypotension [Unknown]
  - Weight decreased [Unknown]
  - Hyperglycaemia [Unknown]
  - Constipation [Unknown]
  - Asthenia [Unknown]
